FAERS Safety Report 6070342-5 (Version None)
Quarter: 2009Q1

REPORT INFORMATION
  Report Type: 
  Country: None (occurrence: None)
  Receive Date: 20090209
  Receipt Date: 20090202
  Transmission Date: 20090719
  Serious: Yes (Hospitalization)
  Sender: FDA-Public Use
  Company Number: JP-ABBOTT-09P-087-0501150-00

PATIENT
  Age: 9 Month
  Sex: Male

DRUGS (2)
  1. CEFZON FINE GRANULE [Suspect]
     Indication: NASOPHARYNGITIS
     Route: 048
     Dates: start: 20090122, end: 20090126
  2. LACTOBACILLUS BIFIDUS, LYOPHILIZED [Concomitant]
     Indication: DRUG USE FOR UNKNOWN INDICATION
     Route: 048
     Dates: start: 20090122

REACTIONS (3)
  - NEUTROPHIL COUNT DECREASED [None]
  - PYREXIA [None]
  - RASH [None]
